FAERS Safety Report 17872006 (Version 3)
Quarter: 2021Q4

REPORT INFORMATION
  Report Type: Report from Study
  Country: CA (occurrence: CA)
  Receive Date: 20200608
  Receipt Date: 20211217
  Transmission Date: 20220303
  Serious: Yes (Hospitalization)
  Sender: FDA-Public Use
  Company Number: CA-JNJFOC-20200601312

PATIENT
  Age: 62 Year
  Sex: Male

DRUGS (23)
  1. ABIRATERONE ACETATE [Suspect]
     Active Substance: ABIRATERONE ACETATE
     Indication: Prostate cancer metastatic
     Route: 048
     Dates: start: 201805
  2. LEUPROLIDE [Suspect]
     Active Substance: LEUPROLIDE
     Indication: Prostate cancer metastatic
     Route: 065
     Dates: start: 201703, end: 20191008
  3. LEUPROLIDE [Suspect]
     Active Substance: LEUPROLIDE
     Route: 065
     Dates: start: 20191008
  4. PREDNISONE [Suspect]
     Active Substance: PREDNISONE
     Indication: Prostate cancer metastatic
     Route: 065
     Dates: end: 20200423
  5. RADIUM RA-223 DICHLORIDE [Suspect]
     Active Substance: RADIUM RA-223 DICHLORIDE
     Indication: Prostate cancer metastatic
     Route: 065
     Dates: start: 20180607, end: 20180613
  6. DEXAMETHASONE [Suspect]
     Active Substance: DEXAMETHASONE
     Indication: Prostate cancer metastatic
     Route: 065
     Dates: start: 20200423
  7. AZITHROMYCIN [Concomitant]
     Active Substance: AZITHROMYCIN
     Indication: Sepsis
     Route: 065
     Dates: start: 20180717, end: 20180718
  8. VANCOMYCIN [Concomitant]
     Active Substance: VANCOMYCIN
     Indication: Sepsis
     Route: 065
     Dates: start: 20180717, end: 20180718
  9. VANCOMYCIN [Concomitant]
     Active Substance: VANCOMYCIN
     Route: 065
     Dates: start: 20190125, end: 20190208
  10. VANCOMYCIN [Concomitant]
     Active Substance: VANCOMYCIN
     Route: 065
     Dates: start: 201908, end: 201908
  11. SODIUM CHLORIDE [Concomitant]
     Active Substance: SODIUM CHLORIDE
     Indication: Sepsis
     Route: 042
     Dates: start: 20180717, end: 20180718
  12. PIPERACILLIN [Concomitant]
     Active Substance: PIPERACILLIN
     Indication: Sepsis
     Route: 065
     Dates: start: 20180717, end: 20180717
  13. HYDROMORPHONE [Concomitant]
     Active Substance: HYDROMORPHONE
     Dosage: CR CAPSULE
     Route: 065
     Dates: start: 201806, end: 201807
  14. HYDROMORPHONE [Concomitant]
     Active Substance: HYDROMORPHONE
     Route: 065
     Dates: start: 201806, end: 201806
  15. CEFAZOLIN [Concomitant]
     Active Substance: CEFAZOLIN
     Indication: Sepsis
     Route: 065
     Dates: start: 20190125, end: 20190223
  16. CEFAZOLIN [Concomitant]
     Active Substance: CEFAZOLIN
     Route: 065
     Dates: start: 201908, end: 201909
  17. GENTAMYCINE                        /00047101/ [Concomitant]
     Indication: Sepsis
     Route: 065
     Dates: start: 20190125, end: 201901
  18. GENTAMYCINE                        /00047101/ [Concomitant]
     Route: 065
     Dates: start: 201908, end: 201908
  19. ANCEF                              /00288502/ [Concomitant]
     Indication: Sepsis
     Route: 065
     Dates: start: 201908, end: 20190914
  20. METHADONE [Concomitant]
     Active Substance: METHADONE HYDROCHLORIDE
     Route: 065
     Dates: start: 201909, end: 201909
  21. SODIUM CHLORIDE [Concomitant]
     Active Substance: SODIUM CHLORIDE
     Indication: Hyponatraemia
     Route: 065
     Dates: start: 20200203, end: 20200204
  22. ONDANSETRON [Concomitant]
     Active Substance: ONDANSETRON
     Route: 065
     Dates: start: 20200228, end: 20200229
  23. COLCHICINE [Concomitant]
     Active Substance: COLCHICINE
     Route: 065
     Dates: start: 20190712

REACTIONS (1)
  - Pathological fracture [Not Recovered/Not Resolved]

NARRATIVE: CASE EVENT DATE: 20200514
